FAERS Safety Report 9055294 (Version 1)
Quarter: 2013Q1

REPORT INFORMATION
  Report Type: Spontaneous
  Country: CA (occurrence: CA)
  Receive Date: 20130209
  Receipt Date: 20130209
  Transmission Date: 20140127
  Serious: Yes (Hospitalization)
  Sender: FDA-Public Use
  Company Number: CA-AMGEN-CANSP2013007790

PATIENT
  Age: 62 Year
  Sex: Male
  Weight: 59.09 kg

DRUGS (1)
  1. PROLIA [Suspect]
     Indication: OSTEOPOROSIS

REACTIONS (5)
  - Pneumonia [Unknown]
  - Ulcer [Unknown]
  - Large intestine polyp [Unknown]
  - Fall [Unknown]
  - Gait disturbance [Unknown]
